FAERS Safety Report 7288876-4 (Version None)
Quarter: 2011Q1

REPORT INFORMATION
  Report Type: 
  Country: None (occurrence: None)
  Receive Date: 20110211
  Receipt Date: 20110202
  Transmission Date: 20110831
  Serious: Yes (Hospitalization)
  Sender: FDA-Public Use
  Company Number: US-ASTRAZENECA-2011SE05788

PATIENT
  Age: 22 Year
  Sex: Female

DRUGS (3)
  1. ATIVAN [Concomitant]
  2. PAXIL [Concomitant]
  3. SEROQUEL XR [Suspect]
     Indication: BIPOLAR DISORDER
     Route: 048

REACTIONS (3)
  - CONVULSION [None]
  - HYPERSOMNIA [None]
  - TRANSIENT ISCHAEMIC ATTACK [None]
